FAERS Safety Report 4832185-7 (Version None)
Quarter: 2005Q4

REPORT INFORMATION
  Report Type: 
  Country: None (occurrence: None)
  Receive Date: 20051118
  Receipt Date: 20051109
  Transmission Date: 20060501
  Serious: Yes (Hospitalization, Other)
  Sender: FDA-Public Use
  Company Number: US-MERCK-0511USA01800

PATIENT
  Sex: Female
  Weight: 99 kg

DRUGS (9)
  1. VIOXX [Suspect]
     Indication: BACK PAIN
     Route: 048
     Dates: start: 19980101, end: 20040901
  2. VIOXX [Suspect]
     Route: 048
     Dates: start: 19980101, end: 20040901
  3. VIOXX [Suspect]
     Indication: ARTHRALGIA
     Route: 048
     Dates: start: 19980101, end: 20040901
  4. VIOXX [Suspect]
     Route: 048
     Dates: start: 19980101, end: 20040901
  5. ZOLOFT [Concomitant]
     Route: 065
  6. SYNTHROID [Concomitant]
     Route: 065
  7. ASPIRIN [Concomitant]
     Route: 065
  8. VIOXX [Concomitant]
     Indication: NECK PAIN
     Route: 048
     Dates: start: 19980101, end: 20040901
  9. [THERAPY UNSPECIFIED] [Concomitant]
     Indication: BLOOD PRESSURE
     Route: 065

REACTIONS (10)
  - ASTHENIA [None]
  - CONDITION AGGRAVATED [None]
  - DEPRESSION [None]
  - DIABETES MELLITUS [None]
  - KNEE ARTHROPLASTY [None]
  - MALAISE [None]
  - MYOCARDIAL INFARCTION [None]
  - PAIN [None]
  - PANIC REACTION [None]
  - SKIN DISORDER [None]
